FAERS Safety Report 20899243 (Version 1)
Quarter: 2022Q2

REPORT INFORMATION
  Report Type: Spontaneous
  Country: IT (occurrence: IT)
  Receive Date: 20220601
  Receipt Date: 20220601
  Transmission Date: 20220721
  Serious: Yes (Other)
  Sender: FDA-Public Use
  Company Number: IT-ALKEM LABORATORIES LIMITED-IT-ALKEM-2022-05201

PATIENT
  Sex: Female

DRUGS (3)
  1. CEFIXIME [Suspect]
     Active Substance: CEFIXIME
     Indication: Antibiotic therapy
     Dosage: UNK
     Route: 065
  2. CARBAMAZEPINE [Suspect]
     Active Substance: CARBAMAZEPINE
     Indication: Epilepsy
     Dosage: 900 MILLIGRAM PER DAY
     Route: 065
  3. LEVETIRACETAM [Suspect]
     Active Substance: LEVETIRACETAM
     Indication: Epilepsy
     Dosage: 3000 MILLIGRAM PER DAY
     Route: 065

REACTIONS (2)
  - Status epilepticus [Unknown]
  - Drug interaction [Unknown]
